FAERS Safety Report 4486086-7 (Version None)
Quarter: 2004Q3

REPORT INFORMATION
  Report Type: 
  Country: None (occurrence: None)
  Receive Date: 20040921
  Receipt Date: 20040420
  Transmission Date: 20050211
  Serious: Yes (Other)
  Sender: FDA-Public Use
  Company Number: 163-20785-04040498 (0)

PATIENT
  Age: 72 Year
  Sex: Female

DRUGS (1)
  1. THALOMID [Suspect]
     Dosage: ORAL; 6 TIMES
     Route: 048

REACTIONS (2)
  - ABDOMINAL PAIN UPPER [None]
  - SYNCOPE [None]
